FAERS Safety Report 17553532 (Version 1)
Quarter: 2020Q1

REPORT INFORMATION
  Report Type: Report from Study
  Country: DE (occurrence: DE)
  Receive Date: 20200317
  Receipt Date: 20200317
  Transmission Date: 20200409
  Serious: Yes (Death, Other)
  Sender: FDA-Public Use
  Company Number: DE-INCYTE CORPORATION-2015IN006929

PATIENT

DRUGS (10)
  1. METOPROLOL RETARD GEA [Concomitant]
     Active Substance: METOPROLOL
     Indication: HYPERTENSION
     Dosage: 200 MG, UNK
  2. ENALAPRIL [Concomitant]
     Active Substance: ENALAPRIL
     Indication: HYPERTENSION
     Dosage: 20 MG, UNK
     Route: 065
  3. INCB018424 [Suspect]
     Active Substance: RUXOLITINIB
     Dosage: 15 MG, BID
     Route: 048
     Dates: start: 20130821, end: 20130915
  4. INCB018424 [Suspect]
     Active Substance: RUXOLITINIB
     Dosage: 5 MG, BID
     Route: 048
     Dates: start: 20130921, end: 20130925
  5. HYDROCHLOROTHIAZIDE. [Concomitant]
     Active Substance: HYDROCHLOROTHIAZIDE
     Indication: HYPERTENSION
     Dosage: 25 MG, UNK
     Route: 065
     Dates: start: 20110316
  6. DOXA-PUREN [Concomitant]
     Indication: HYPERTENSION
     Dosage: 4 MG, UNK
     Route: 065
  7. INCB018424 [Suspect]
     Active Substance: RUXOLITINIB
     Indication: PRIMARY MYELOFIBROSIS
     Dosage: 20 MG, BID
     Route: 048
     Dates: start: 20130718
  8. INCB018424 [Suspect]
     Active Substance: RUXOLITINIB
     Dosage: 10 MG, BID
     Route: 048
     Dates: start: 20130916, end: 20130920
  9. INCB018424 [Suspect]
     Active Substance: RUXOLITINIB
     Dosage: 20 MG, BID
     Route: 048
     Dates: start: 20130926, end: 20151015
  10. INCB018424 [Suspect]
     Active Substance: RUXOLITINIB
     Dosage: 15 MG, BID
     Route: 048
     Dates: start: 20151016

REACTIONS (4)
  - Primary myelofibrosis [Fatal]
  - Bronchitis [Unknown]
  - Thrombocytopenia [Not Recovered/Not Resolved]
  - Iron overload [Unknown]

NARRATIVE: CASE EVENT DATE: 20140313
